FAERS Safety Report 7902379-2 (Version None)
Quarter: 2011Q4

REPORT INFORMATION
  Report Type: 
  Country: None (occurrence: None)
  Receive Date: 20111108
  Receipt Date: 20111031
  Transmission Date: 20120403
  Serious: Yes (Other)
  Sender: FDA-Public Use
  Company Number: US-ASTRAZENECA-2011SE66124

PATIENT
  Age: 37 Year
  Sex: Female

DRUGS (3)
  1. ESOMEPRAZOLE [Concomitant]
  2. LORATADINE [Concomitant]
  3. BUDESONIDE WITH FORMOTEROL [Suspect]
     Indication: ASTHMA
     Route: 055

REACTIONS (1)
  - CARCINOID TUMOUR PULMONARY [None]
